FAERS Safety Report 11199306 (Version 1)
Quarter: 2015Q2

REPORT INFORMATION
  Report Type: Spontaneous
  Country: US (occurrence: None)
  Receive Date: 20150616
  Receipt Date: 20150616
  Transmission Date: 20150821
  Serious: Yes (Hospitalization)
  Sender: FDA-Public Use
  Company Number: None

PATIENT
  Age: 51 Year
  Sex: Female
  Weight: 65.77 kg

DRUGS (7)
  1. MVI [Concomitant]
     Active Substance: VITAMINS
  2. FE [Concomitant]
     Active Substance: IRON
  3. PROBIOTICS [Concomitant]
     Active Substance: PROBIOTICS NOS
  4. ALLOPURINOL 100 MG [Suspect]
     Active Substance: ALLOPURINOL
     Indication: RENAL IMPAIRMENT
     Dosage: 100 MG TALE 2 PO DAILY
     Route: 048
     Dates: start: 20150501, end: 20150608
  5. VITAMIN D [Concomitant]
     Active Substance: CHOLECALCIFEROL
  6. VITAMIN C [Concomitant]
     Active Substance: ASCORBIC ACID
  7. VITAMIN B6 [Concomitant]
     Active Substance: PYRIDOXINE HYDROCHLORIDE

REACTIONS (3)
  - Appendicitis perforated [None]
  - Vomiting [None]
  - Pyrexia [None]

NARRATIVE: CASE EVENT DATE: 20150608
